FAERS Safety Report 5034832-6 (Version None)
Quarter: 2006Q2

REPORT INFORMATION
  Report Type: 
  Country: None (occurrence: None)
  Receive Date: 20060519
  Receipt Date: 20060303
  Transmission Date: 20061013
  Serious: No
  Sender: FDA-Public Use
  Company Number: TPA2006A00380

PATIENT
  Sex: Female

DRUGS (1)
  1. ROZEREM [Suspect]

REACTIONS (1)
  - SOMNOLENCE [None]
